FAERS Safety Report 4637343-2 (Version None)
Quarter: 2005Q2

REPORT INFORMATION
  Report Type: 
  Country: None (occurrence: None)
  Receive Date: 20050418
  Receipt Date: 20050411
  Transmission Date: 20051028
  Serious: Yes (Other)
  Sender: FDA-Public Use
  Company Number: US-BRISTOL-MYERS SQUIBB COMPANY-12928644

PATIENT
  Age: 73 Year
  Sex: Female
  Weight: 44 kg

DRUGS (2)
  1. ERBITUX [Suspect]
     Indication: TONGUE NEOPLASM MALIGNANT STAGE UNSPECIFIED
     Dosage: REC'D ON 17-MAR (556MG), 24-MAR (348MG), 31-MAR (348MG), 07-APR (348MG).
     Route: 042
     Dates: start: 20050331, end: 20050331
  2. ADVIL [Concomitant]

REACTIONS (3)
  - CHILLS [None]
  - HYPERTENSION [None]
  - TACHYCARDIA [None]
